FAERS Safety Report 7493014-9 (Version None)
Quarter: 2011Q2

REPORT INFORMATION
  Report Type: 
  Country: None (occurrence: None)
  Receive Date: 20110520
  Receipt Date: 20110509
  Transmission Date: 20111010
  Serious: Yes (Other)
  Sender: FDA-Public Use
  Company Number: US-CEPHALON-2011000837

PATIENT
  Sex: Female

DRUGS (1)
  1. NUVIGIL [Suspect]
     Route: 048
     Dates: end: 20110401

REACTIONS (10)
  - RENAL DISORDER [None]
  - NERVOUSNESS [None]
  - FEELING ABNORMAL [None]
  - HYPERHIDROSIS [None]
  - OCULAR HYPERAEMIA [None]
  - ANXIETY [None]
  - LIVER DISORDER [None]
  - UNEVALUABLE EVENT [None]
  - FATIGUE [None]
  - PAIN [None]
